FAERS Safety Report 17849481 (Version 1)
Quarter: 2020Q2

REPORT INFORMATION
  Report Type: Spontaneous
  Country: GB (occurrence: GB)
  Receive Date: 20200602
  Receipt Date: 20200602
  Transmission Date: 20200714
  Serious: Yes (Life-Threatening, Other)
  Sender: FDA-Public Use
  Company Number: GB-TEVA-2020-GB-1242394

PATIENT
  Age: 76 Year
  Sex: Female

DRUGS (6)
  1. PARACETAMOL [Concomitant]
     Active Substance: ACETAMINOPHEN
  2. WARFARIN [Suspect]
     Active Substance: WARFARIN
     Indication: ATRIAL FIBRILLATION
     Route: 048
  3. FLUCLOXACILLIN [Concomitant]
     Active Substance: FLUCLOXACILLIN
  4. FUROSEMIDE. [Concomitant]
     Active Substance: FUROSEMIDE
  5. BISOPROLOL FUMARATE. [Concomitant]
     Active Substance: BISOPROLOL FUMARATE
  6. CODEINE [Concomitant]
     Active Substance: CODEINE

REACTIONS (3)
  - Gamma-glutamyltransferase increased [Unknown]
  - International normalised ratio increased [Recovered/Resolved]
  - Blood alkaline phosphatase increased [Unknown]
